FAERS Safety Report 14241522 (Version 1)
Quarter: 2017Q4

REPORT INFORMATION
  Report Type: Report from Study
  Country: None (occurrence: AU)
  Receive Date: 20171201
  Receipt Date: 20171201
  Transmission Date: 20180321
  Serious: Yes (Life-Threatening, Hospitalization)
  Sender: FDA-Public Use
  Company Number: AU-ABBVIE-17K-008-2177350-00

PATIENT
  Sex: Male

DRUGS (1)
  1. HUMIRA [Suspect]
     Active Substance: ADALIMUMAB
     Indication: RHEUMATOID ARTHRITIS
     Route: 058
     Dates: start: 20170610, end: 2017

REACTIONS (6)
  - Cardio-respiratory arrest [Unknown]
  - Pseudomonas infection [Unknown]
  - Gastrointestinal infection [Unknown]
  - Procedural haemorrhage [Unknown]
  - Sepsis [Unknown]
  - Procedural complication [Unknown]
